FAERS Safety Report 18714433 (Version 12)
Quarter: 2023Q2

REPORT INFORMATION
  Report Type: Other
  Country: JP (occurrence: JP)
  Receive Date: 20210108
  Receipt Date: 20230606
  Transmission Date: 20230722
  Serious: Yes (Hospitalization, Other)
  Sender: FDA-Public Use
  Company Number: JP-CHUGAI-A2020056179ROCHE

PATIENT
  Age: 57 Year
  Sex: Female
  Weight: 41 kg

DRUGS (12)
  1. SATRALIZUMAB [Suspect]
     Active Substance: SATRALIZUMAB
     Indication: Neuromyelitis optica spectrum disorder
     Dosage: HYPODERMIC
     Route: 058
     Dates: start: 20201026, end: 20201109
  2. SATRALIZUMAB [Suspect]
     Active Substance: SATRALIZUMAB
     Dosage: HYPODERMIC
     Route: 058
     Dates: start: 20201130, end: 20201130
  3. SATRALIZUMAB [Suspect]
     Active Substance: SATRALIZUMAB
     Dosage: HYPODERMIC
     Route: 058
     Dates: start: 20201228, end: 20210322
  4. SATRALIZUMAB [Suspect]
     Active Substance: SATRALIZUMAB
     Dosage: HYPODERMIC
     Route: 058
     Dates: start: 20210426
  5. PREDONINE [Suspect]
     Active Substance: PREDNISOLONE
     Indication: Neuromyelitis optica spectrum disorder
     Dosage: DOSAGE IS UNCERTAIN.
     Route: 048
     Dates: start: 20201026
  6. PREDONINE [Suspect]
     Active Substance: PREDNISOLONE
     Dosage: DOSAGE IS UNCERTAIN.
     Route: 048
  7. PREDONINE [Suspect]
     Active Substance: PREDNISOLONE
     Dosage: DOSAGE IS UNCERTAIN.
     Route: 048
  8. PREDONINE [Suspect]
     Active Substance: PREDNISOLONE
     Dosage: DOSAGE IS UNCERTAIN.
     Route: 048
  9. PREDONINE [Suspect]
     Active Substance: PREDNISOLONE
     Route: 048
  10. PREDONINE [Suspect]
     Active Substance: PREDNISOLONE
     Route: 048
  11. AZULFIDINE EN-TABS [Suspect]
     Active Substance: SULFASALAZINE
     Indication: Neuromyelitis optica spectrum disorder
     Dosage: DOSAGE IS UNCERTAIN.
     Route: 065
  12. AZULFIDINE EN-TABS [Suspect]
     Active Substance: SULFASALAZINE
     Dosage: DOSAGE IS UNCERTAIN.
     Route: 065

REACTIONS (3)
  - Pericardial effusion [Unknown]
  - Pneumonia aspiration [Recovering/Resolving]
  - Urinary tract infection [Recovered/Resolved]

NARRATIVE: CASE EVENT DATE: 20201202
